FAERS Safety Report 19499034 (Version 1)
Quarter: 2021Q3

REPORT INFORMATION
  Report Type: Spontaneous
  Country: GB (occurrence: GB)
  Receive Date: 20210707
  Receipt Date: 20210707
  Transmission Date: 20211014
  Serious: Yes (Other)
  Sender: FDA-Public Use
  Company Number: GB-ACCORD-230784

PATIENT
  Age: 72 Year
  Sex: Female

DRUGS (6)
  1. CISPLATIN. [Suspect]
     Active Substance: CISPLATIN
     Indication: PRODUCT USED FOR UNKNOWN INDICATION
  2. LAXOBERAL [Concomitant]
     Active Substance: SODIUM PICOSULFATE
  3. OPATANOL [Concomitant]
     Active Substance: OLOPATADINE
  4. TEVA UK LANSOPRAZOLE [Concomitant]
     Active Substance: LANSOPRAZOLE
  5. EUTHYROX [Concomitant]
     Active Substance: LEVOTHYROXINE SODIUM
     Dosage: UNK
  6. MOTILIUM [Concomitant]
     Active Substance: DOMPERIDONE

REACTIONS (1)
  - Enterobacter bacteraemia [Unknown]
